FAERS Safety Report 16829523 (Version 1)
Quarter: 2019Q3

REPORT INFORMATION
  Report Type: Spontaneous
  Country: GB (occurrence: GB)
  Receive Date: 20190919
  Receipt Date: 20190919
  Transmission Date: 20191005
  Serious: Yes (Other)
  Sender: FDA-Public Use
  Company Number: GB-ETHYPHARM-201901980

PATIENT
  Sex: Male

DRUGS (2)
  1. ESPRANOR [Suspect]
     Active Substance: BUPRENORPHINE HYDROCHLORIDE
     Indication: PRODUCT USED FOR UNKNOWN INDICATION
     Route: 065
  2. METHADONE [Concomitant]
     Active Substance: METHADONE HYDROCHLORIDE
     Indication: PRODUCT USED FOR UNKNOWN INDICATION
     Route: 065

REACTIONS (9)
  - Feeling abnormal [Unknown]
  - Panic attack [Unknown]
  - Abdominal pain [Unknown]
  - Syncope [Unknown]
  - Pollakiuria [Unknown]
  - Physical disability [Unknown]
  - Daydreaming [Unknown]
  - Alopecia [Unknown]
  - Aphasia [Unknown]
